FAERS Safety Report 17091300 (Version 1)
Quarter: 2019Q4

REPORT INFORMATION
  Report Type: Spontaneous
  Country: DE (occurrence: DE)
  Receive Date: 20191129
  Receipt Date: 20191129
  Transmission Date: 20200122
  Serious: Yes (Other)
  Sender: FDA-Public Use
  Company Number: DE-TEVA-2019-DE-1146059

PATIENT
  Age: 57 Year
  Sex: Male
  Weight: 110 kg

DRUGS (12)
  1. RITUXIMAB. [Suspect]
     Active Substance: RITUXIMAB
     Indication: DIFFUSE LARGE B-CELL LYMPHOMA
     Dosage: 1ST LINE THERAPY, ACCORDING TO R-BENDAMUSTINE REGIMEN, 6 CYCLES
     Route: 065
     Dates: start: 201108, end: 201203
  2. BENDAMUSTINE HYDROCHLORIDE. [Suspect]
     Active Substance: BENDAMUSTINE HYDROCHLORIDE
     Dosage: 3RD LINE THERAPY, ACCORDING TO O-BENDAMUSTIN REGIMEN, 1 CYCLE, CYCLIC
     Route: 042
     Dates: start: 201709, end: 201709
  3. RITUXIMAB. [Suspect]
     Active Substance: RITUXIMAB
     Dosage: 5TH LINE THERAPY, ACCORDING TO R-DHAP REGIMEN, 2 CYCLES
     Route: 065
     Dates: start: 201901, end: 201902
  4. CHOP [Suspect]
     Active Substance: CYCLOPHOSPHAMIDE\DOXORUBICIN\PREDNISONE\VINCRISTINE
     Indication: DIFFUSE LARGE B-CELL LYMPHOMA
     Route: 065
     Dates: start: 201507, end: 201511
  5. ETOPOSIDE. [Suspect]
     Active Substance: ETOPOSIDE
     Indication: DIFFUSE LARGE B-CELL LYMPHOMA
     Route: 065
     Dates: start: 201803, end: 201805
  6. CARBOPLATIN. [Suspect]
     Active Substance: CARBOPLATIN
     Indication: DIFFUSE LARGE B-CELL LYMPHOMA
     Route: 065
     Dates: start: 201803, end: 201805
  7. IFOSFAMIDE. [Suspect]
     Active Substance: IFOSFAMIDE
     Indication: DIFFUSE LARGE B-CELL LYMPHOMA
     Route: 065
     Dates: start: 201803, end: 201805
  8. DHAP [Suspect]
     Active Substance: CISPLATIN\CYTARABINE\DEXAMETHASONE
     Indication: DIFFUSE LARGE B-CELL LYMPHOMA
     Dates: start: 201801, end: 201802
  9. BENDAMUSTINE HYDROCHLORIDE. [Suspect]
     Active Substance: BENDAMUSTINE HYDROCHLORIDE
     Indication: DIFFUSE LARGE B-CELL LYMPHOMA
     Dosage: 1ST LINE THERAPY, ACCORDING TO R-BENDAMUSTINE REGIMEN, 6 CYCLES, CYCLIC
     Route: 042
     Dates: start: 201108, end: 201203
  10. RITUXIMAB. [Suspect]
     Active Substance: RITUXIMAB
     Dosage: 2ND LINE THERAPY, ACCORDING TO R-CHOP, 6 CYCLES
     Route: 065
     Dates: start: 201507, end: 201511
  11. OBINUTUZUMAB. [Suspect]
     Active Substance: OBINUTUZUMAB
     Dosage: 4TH LINE THERAPY, ACCORDING TO O-ICE REGIMEN, 3 CYCLES
     Route: 042
     Dates: start: 201803, end: 201805
  12. OBINUTUZUMAB. [Suspect]
     Active Substance: OBINUTUZUMAB
     Indication: DIFFUSE LARGE B-CELL LYMPHOMA
     Dosage: 3RD LINE THERAPY, ACCORDING TO O-BENDAMUSTIN REGIMEN, 1 CYCLE
     Route: 042
     Dates: start: 201709, end: 201709

REACTIONS (2)
  - Neuropathy peripheral [Unknown]
  - Product use in unapproved indication [Unknown]

NARRATIVE: CASE EVENT DATE: 201108
